FAERS Safety Report 16779891 (Version 1)
Quarter: 2019Q3

REPORT INFORMATION
  Report Type: Spontaneous
  Country: CA (occurrence: CA)
  Receive Date: 20190906
  Receipt Date: 20190906
  Transmission Date: 20191005
  Serious: Yes (Hospitalization, Other)
  Sender: FDA-Public Use
  Company Number: CA-BAYER-2019-158178

PATIENT
  Sex: Female
  Weight: 54.42 kg

DRUGS (5)
  1. CIPRO [Suspect]
     Active Substance: CIPROFLOXACIN HYDROCHLORIDE
     Dosage: 500 MG, BID
     Route: 048
     Dates: start: 201907
  2. METRONIDAZOLE. [Concomitant]
     Active Substance: METRONIDAZOLE
     Dosage: 500 MG, BID
     Route: 048
     Dates: start: 201907
  3. MORPHINE [Concomitant]
     Active Substance: MORPHINE
     Dosage: UNK, PRN
  4. FLAGYL [Concomitant]
     Active Substance: METRONIDAZOLE\METRONIDAZOLE HYDROCHLORIDE
     Dosage: 500 MG, BID
     Route: 048
     Dates: start: 201907
  5. HUMIRA [Concomitant]
     Active Substance: ADALIMUMAB
     Dosage: UNK
     Dates: end: 201907

REACTIONS (7)
  - Surgery [None]
  - Ileostomy [None]
  - Faeces soft [None]
  - General physical health deterioration [None]
  - Abdominal pain [None]
  - Anal abscess [None]
  - Drug ineffective [None]

NARRATIVE: CASE EVENT DATE: 2019
